FAERS Safety Report 5456853-1 (Version None)
Quarter: 2007Q3

REPORT INFORMATION
  Report Type: 
  Country: None (occurrence: None)
  Receive Date: 20070917
  Receipt Date: 20070917
  Transmission Date: 20080115
  Serious: No
  Sender: FDA-Public Use
  Company Number: None

PATIENT
  Sex: Female
  Weight: 67.586 kg

DRUGS (8)
  1. METFORMIN HYDROCHLORIDE ER TABLETS, 500MG [Suspect]
     Indication: DIABETES MELLITUS
     Dosage: 2 TABLETS TWICE DAILY
     Dates: start: 20070801
  2. FEXOFENADINE [Concomitant]
  3. VYTORIN [Concomitant]
  4. METFORMIN HYDROCHLORIDE ER TABLETS, 500MG [Suspect]
     Indication: DIABETES MELLITUS
     Dosage: 2 TABLETS TWICE DAILY
     Dates: start: 20070801
  5. FEXOFENADINE [Concomitant]
  6. VYTORIN [Concomitant]
  7. FUROSEMIDE [Concomitant]
  8. SINGULAIR [Concomitant]

REACTIONS (4)
  - BLOOD GLUCOSE INCREASED [None]
  - DIARRHOEA [None]
  - MUSCLE SPASMS [None]
  - PHARMACEUTICAL PRODUCT COMPLAINT [None]
